FAERS Safety Report 7583827-7 (Version None)
Quarter: 2011Q2

REPORT INFORMATION
  Report Type: 
  Country: None (occurrence: None)
  Receive Date: 20110630
  Receipt Date: 20110621
  Transmission Date: 20111010
  Serious: Yes (Hospitalization)
  Sender: FDA-Public Use
  Company Number: US-ROCHE-785856

PATIENT

DRUGS (1)
  1. CELLCEPT [Suspect]
     Route: 048

REACTIONS (2)
  - HOSPITALISATION [None]
  - MEDICATION ERROR [None]
